FAERS Safety Report 6416967-6 (Version None)
Quarter: 2009Q4

REPORT INFORMATION
  Report Type: 
  Country: None (occurrence: None)
  Receive Date: 20091027
  Receipt Date: 20090306
  Transmission Date: 20100525
  Serious: No
  Sender: FDA-Public Use
  Company Number: US-ALLERGAN-0902796US

PATIENT
  Sex: Male

DRUGS (6)
  1. ALPHAGAN P [Suspect]
     Indication: GLAUCOMA
     Dosage: 1 GTT, BID
     Route: 047
  2. ALPHAGAN P [Suspect]
  3. ALPHAGAN P [Suspect]
  4. ALPHAGAN P [Suspect]
  5. ALPHAGAN P [Suspect]
  6. COSOPT [Concomitant]

REACTIONS (1)
  - INTRAOCULAR PRESSURE INCREASED [None]
